FAERS Safety Report 24430443 (Version 3)
Quarter: 2025Q3

REPORT INFORMATION
  Report Type: Spontaneous
  Country: EU (occurrence: EU)
  Receive Date: 20241013
  Receipt Date: 20250910
  Transmission Date: 20251020
  Serious: Yes (Hospitalization, Other)
  Sender: DR REDDYS
  Company Number: None

PATIENT
  Age: 39 Year
  Sex: Male

DRUGS (10)
  1. PREGABALIN [Suspect]
     Active Substance: PREGABALIN
     Indication: Generalised anxiety disorder
     Dosage: 600 MILLIGRAM, BID ( PER DAY IN TWO DIVIDED DOSES) REDUCED TO 600 MG WITHIN 14 DAYS
     Dates: start: 202301
  2. PREGABALIN [Suspect]
     Active Substance: PREGABALIN
     Indication: Personality disorder
     Dosage: CURRENTLY TAKING 1,500 MG PER DAY
  3. PREGABALIN [Suspect]
     Active Substance: PREGABALIN
     Dosage: REDUCE THE SUPRAMAXIMAL DOSES - REDUCTION CPS 2-2-1 SCHEDULE
     Route: 065
  4. PREGABALIN [Suspect]
     Active Substance: PREGABALIN
     Dosage: ONE MORNING DOSE, ALSO BY SNIFFING, ARBITRARILY INCREASED THE DOSE
     Route: 050
     Dates: start: 202301
  5. TRAMADOL [Suspect]
     Active Substance: TRAMADOL
     Indication: Antisocial behaviour
  6. TRAMADOL [Suspect]
     Active Substance: TRAMADOL
     Indication: Narcissistic personality disorder
  7. TRAMADOL [Suspect]
     Active Substance: TRAMADOL
     Indication: Impulsive behaviour
  8. CLONAZEPAM [Suspect]
     Active Substance: CLONAZEPAM
     Indication: Antisocial behaviour
     Dosage: 6 MILLIGRAM, QD
  9. CLONAZEPAM [Suspect]
     Active Substance: CLONAZEPAM
     Indication: Narcissistic personality disorder
  10. CLONAZEPAM [Suspect]
     Active Substance: CLONAZEPAM
     Indication: Impulsive behaviour

REACTIONS (12)
  - Drug dependence [Not Recovered/Not Resolved]
  - Tension [Not Recovered/Not Resolved]
  - Conjunctival hyperaemia [Not Recovered/Not Resolved]
  - Hyperhidrosis [Not Recovered/Not Resolved]
  - Anxiety [Not Recovered/Not Resolved]
  - Withdrawal syndrome [Not Recovered/Not Resolved]
  - Aggression [Unknown]
  - Insomnia [Not Recovered/Not Resolved]
  - Drug dependence [Not Recovered/Not Resolved]
  - Intentional overdose [Recovered/Resolved]
  - Psychiatric decompensation [Recovered/Resolved]
  - Behaviour disorder [Unknown]
